FAERS Safety Report 24283231 (Version 2)
Quarter: 2024Q3

REPORT INFORMATION
  Report Type: Spontaneous
  Country: JP (occurrence: JP)
  Receive Date: 20240904
  Receipt Date: 20240909
  Transmission Date: 20241016
  Serious: Yes (Other)
  Sender: PFIZER
  Company Number: JP-PFIZER INC-PV202400115287

PATIENT
  Age: 11 Month
  Sex: Female

DRUGS (6)
  1. FOSPHENYTOIN SODIUM [Interacting]
     Active Substance: FOSPHENYTOIN SODIUM
     Indication: Seizure
     Dosage: UNK
     Route: 042
  2. PHENOBARBITAL SODIUM [Interacting]
     Active Substance: PHENOBARBITAL SODIUM
     Indication: Seizure
     Dosage: 20 MG/KG, SINGLE (ONLY ONCE)
     Route: 042
     Dates: start: 20240804, end: 20240804
  3. MIDAZOLAM [Concomitant]
     Active Substance: MIDAZOLAM
     Indication: Seizure
  4. LEVETIRACETAM [Concomitant]
     Active Substance: LEVETIRACETAM
     Indication: Seizure
     Route: 042
  5. METHYLPREDNISOLONE [Concomitant]
     Active Substance: METHYLPREDNISOLONE
     Dosage: UNK
     Route: 065
  6. REMDESIVIR [Concomitant]
     Active Substance: REMDESIVIR
     Route: 065

REACTIONS (3)
  - Drug interaction [Recovered/Resolved]
  - Anaphylactic reaction [Recovered/Resolved]
  - Drug ineffective [Unknown]

NARRATIVE: CASE EVENT DATE: 20240804
